FAERS Safety Report 5816011-5 (Version None)
Quarter: 2008Q3

REPORT INFORMATION
  Report Type: 
  Country: None (occurrence: None)
  Receive Date: 20080721
  Receipt Date: 20080715
  Transmission Date: 20090109
  Serious: Yes (Life-Threatening, Hospitalization, Other)
  Sender: FDA-Public Use
  Company Number: PHHY2008SE13989

PATIENT

DRUGS (1)
  1. ZOLEDRONIC ACID [Suspect]
     Indication: OSTEOPOROSIS
     Dosage: UNK
     Dates: start: 20070101

REACTIONS (13)
  - CARDIAC ARREST [None]
  - CARDIAC DISORDER [None]
  - CIRCULATORY COLLAPSE [None]
  - DYSPNOEA [None]
  - FAECAL INCONTINENCE [None]
  - INFLUENZA LIKE ILLNESS [None]
  - LOSS OF CONSCIOUSNESS [None]
  - PALPITATIONS [None]
  - PNEUMONIA [None]
  - PULMONARY OEDEMA [None]
  - RESUSCITATION [None]
  - RIB FRACTURE [None]
  - URINARY INCONTINENCE [None]
